FAERS Safety Report 6148019-7 (Version None)
Quarter: 2009Q2

REPORT INFORMATION
  Report Type: 
  Country: None (occurrence: None)
  Receive Date: 20090408
  Receipt Date: 20090326
  Transmission Date: 20091009
  Serious: Yes (Other)
  Sender: FDA-Public Use
  Company Number: AU-ROCHE-613059

PATIENT
  Sex: Male
  Weight: 84 kg

DRUGS (3)
  1. PEGASYS [Suspect]
     Indication: HEPATITIS C
     Route: 058
     Dates: start: 20080207, end: 20080724
  2. RIBAVIRIN [Suspect]
     Indication: HEPATITIS C
     Route: 048
     Dates: start: 20080207, end: 20080724
  3. NALTREXONE HYDROCHLORIDE [Concomitant]
     Dosage: DOSE: 1.95 GM X 3 (RELEASE RATE: 0.4-0.5% PER DAY)
     Route: 050
     Dates: start: 20071128, end: 20081101

REACTIONS (1)
  - SMALL CELL LUNG CANCER STAGE UNSPECIFIED [None]
